FAERS Safety Report 17230159 (Version 1)
Quarter: 2020Q1

REPORT INFORMATION
  Report Type: Spontaneous
  Country: TR (occurrence: TR)
  Receive Date: 20200103
  Receipt Date: 20200103
  Transmission Date: 20200409
  Serious: Yes (Hospitalization, Other)
  Sender: FDA-Public Use
  Company Number: TR-TEVA-2019-TR-1162823

PATIENT
  Age: 20 Year
  Sex: Female

DRUGS (4)
  1. ISOTRETINOIN. [Suspect]
     Active Substance: ISOTRETINOIN
     Indication: ACNE
     Route: 065
  2. INDOMETHACIN. [Suspect]
     Active Substance: INDOMETHACIN
     Indication: SACROILIITIS
     Dosage: 150 MILLIGRAM DAILY;
     Route: 065
  3. DICLOFENAC [Suspect]
     Active Substance: DICLOFENAC
     Indication: SACROILIITIS
     Dosage: 150 MILLIGRAM DAILY;
     Route: 065
  4. ACEMETACIN [Suspect]
     Active Substance: ACEMETACIN
     Indication: SACROILIITIS
     Dosage: 120 MILLIGRAM DAILY;
     Route: 065

REACTIONS (3)
  - Sacroiliitis [Recovering/Resolving]
  - Hidradenitis [Recovering/Resolving]
  - Drug ineffective [Unknown]
